FAERS Safety Report 7166770-7 (Version None)
Quarter: 2010Q4

REPORT INFORMATION
  Report Type: 
  Country: None (occurrence: None)
  Receive Date: 20101216
  Receipt Date: 20101213
  Transmission Date: 20110411
  Serious: Yes (Hospitalization)
  Sender: FDA-Public Use
  Company Number: IT-ROCHE-747796

PATIENT
  Sex: Male

DRUGS (6)
  1. AVASTIN [Suspect]
     Indication: COLON CANCER STAGE IV
     Dosage: FREQUENCY: CYCLE.
     Route: 042
     Dates: start: 20090302, end: 20090317
  2. AVASTIN [Suspect]
     Route: 042
  3. FLUOROURACIL [Concomitant]
     Indication: COLON CANCER STAGE IV
     Route: 042
     Dates: start: 20090302, end: 20090317
  4. CAMPTOSAR [Concomitant]
     Indication: COLON CANCER STAGE IV
     Route: 042
     Dates: start: 20090302, end: 20090317
  5. LEDERFOLIN [Concomitant]
     Indication: COLON CANCER STAGE IV
     Route: 042
     Dates: start: 20090302, end: 20090317
  6. LASIX [Concomitant]
     Indication: HYPERTENSION
     Route: 048
     Dates: start: 20050101

REACTIONS (4)
  - NAUSEA [None]
  - SYNCOPE [None]
  - TONIC CLONIC MOVEMENTS [None]
  - VOMITING [None]
